FAERS Safety Report 6175022-3 (Version None)
Quarter: 2009Q2

REPORT INFORMATION
  Report Type: 
  Country: None (occurrence: None)
  Receive Date: 20090430
  Receipt Date: 20090422
  Transmission Date: 20091009
  Serious: Yes (Other)
  Sender: FDA-Public Use
  Company Number: PHHY2009BR15939

PATIENT
  Age: 45 Year
  Sex: Female

DRUGS (4)
  1. CLOZAPINE [Suspect]
     Dosage: 600MG/DAY
  2. VALPROIC ACID [Concomitant]
     Dosage: 2000MG/DAY
  3. LITHIUM CARBONATE [Concomitant]
     Dosage: 600MG DAILY
  4. LEVOMEPROMAZINE [Concomitant]
     Dosage: 400MG/DAY

REACTIONS (5)
  - EXTRAPYRAMIDAL DISORDER [None]
  - HISTRIONIC PERSONALITY DISORDER [None]
  - MOTOR DYSFUNCTION [None]
  - SALIVARY HYPERSECRETION [None]
  - VOMITING [None]
